FAERS Safety Report 4332212-X (Version None)
Quarter: 2004Q1

REPORT INFORMATION
  Report Type: 
  Country: None (occurrence: None)
  Receive Date: 20040331
  Receipt Date: 20040318
  Transmission Date: 20041129
  Serious: Yes (Hospitalization, Other)
  Sender: FDA-Public Use
  Company Number: 2002066527

PATIENT
  Age: 75 Year
  Sex: Male
  Weight: 45 kg

DRUGS (6)
  1. CARDENALIN (DOXAZOSIN) [Suspect]
     Indication: HYPERTENSION
     Dosage: 2 MG (DAILY), ORAL
     Route: 048
     Dates: start: 20020510, end: 20020511
  2. NIFEDIPINE [Suspect]
     Indication: HYPERTENSION
     Dosage: 20 MG (DAILY), ORAL
     Route: 048
     Dates: start: 20020510, end: 20020511
  3. FUROSEMIDE [Suspect]
     Indication: HYPERTENSION
     Dosage: 20 MG (DAILY), ORAL
     Route: 048
     Dates: start: 20020511, end: 20020511
  4. CARVEDILOL [Suspect]
     Indication: HYPERTENSION
     Dosage: 5 MG (DAILY), ORAL
     Route: 048
     Dates: start: 20020511, end: 20020511
  5. NITROGLYCERIN [Suspect]
     Indication: HYPERTENSION
     Dosage: INTRAVENOUS
     Route: 042
     Dates: start: 20020504, end: 20020511
  6. NICARDIPINE (NICARDIPINE) [Suspect]
     Indication: HYPERTENSION
     Dosage: INTRAVENOUS
     Route: 042
     Dates: start: 20020504, end: 20020511

REACTIONS (14)
  - ANGIOGRAM ABNORMAL [None]
  - ARTERIOSCLEROSIS [None]
  - BLOOD PRESSURE INADEQUATELY CONTROLLED [None]
  - CAROTID ARTERY STENOSIS [None]
  - CEREBRAL INFARCTION [None]
  - DEPRESSED LEVEL OF CONSCIOUSNESS [None]
  - HEMIPARESIS [None]
  - HYPOTENSION [None]
  - LACUNAR INFARCTION [None]
  - LEFT VENTRICULAR FAILURE [None]
  - MUSCULAR WEAKNESS [None]
  - NUCLEAR MAGNETIC RESONANCE IMAGING BRAIN ABNORMAL [None]
  - PULSE WAVEFORM ABNORMAL [None]
  - SOMNOLENCE [None]
